FAERS Safety Report 7591988-9 (Version None)
Quarter: 2011Q3

REPORT INFORMATION
  Report Type: 
  Country: None (occurrence: None)
  Receive Date: 20110701
  Receipt Date: 20110701
  Transmission Date: 20111222
  Serious: Yes (Hospitalization)
  Sender: FDA-Public Use
  Company Number: None

PATIENT
  Age: 98 Year
  Sex: Male
  Weight: 63.9572 kg

DRUGS (1)
  1. LASIX [Suspect]

REACTIONS (3)
  - DEVICE COMPUTER ISSUE [None]
  - MEDICATION ERROR [None]
  - INCORRECT DOSE ADMINISTERED [None]
